FAERS Safety Report 7664534-9 (Version None)
Quarter: 2011Q3

REPORT INFORMATION
  Report Type: 
  Country: None (occurrence: None)
  Receive Date: 20110806
  Receipt Date: 20110105
  Transmission Date: 20111222
  Serious: No
  Sender: FDA-Public Use
  Company Number: US-ABBOTT-11P-163-0695262-00

PATIENT
  Sex: Male
  Weight: 81.72 kg

DRUGS (3)
  1. MULTI-VITAMIN [Concomitant]
     Indication: PRODUCT USED FOR UNKNOWN INDICATION
  2. NIASPAN [Suspect]
     Indication: DYSLIPIDAEMIA
     Dosage: 1000MG NIGHTLY
     Route: 048
     Dates: start: 20100501, end: 20101105
  3. ASPIRIN [Concomitant]
     Indication: PRODUCT USED FOR UNKNOWN INDICATION
     Route: 048

REACTIONS (1)
  - ARTHRALGIA [None]
